FAERS Safety Report 19193101 (Version 5)
Quarter: 2021Q3

REPORT INFORMATION
  Report Type: Report from Study
  Country: US (occurrence: US)
  Receive Date: 20210428
  Receipt Date: 20210908
  Transmission Date: 20211014
  Serious: Yes (Hospitalization)
  Sender: FDA-Public Use
  Company Number: NVSC2021US095961

PATIENT
  Sex: Female

DRUGS (1)
  1. ENTRESTO [Suspect]
     Active Substance: SACUBITRIL\VALSARTAN
     Indication: PRODUCT USED FOR UNKNOWN INDICATION
     Dosage: UNK UNK, BID
     Route: 048

REACTIONS (7)
  - Abdominal discomfort [Unknown]
  - Concomitant disease aggravated [Unknown]
  - Dehydration [Not Recovered/Not Resolved]
  - Fall [Unknown]
  - Hiatus hernia [Unknown]
  - Rib fracture [Unknown]
  - Abdominal pain upper [Unknown]
